FAERS Safety Report 17100455 (Version 2)
Quarter: 2020Q3

REPORT INFORMATION
  Report Type: Spontaneous
  Country: US (occurrence: US)
  Receive Date: 20191202
  Receipt Date: 20200803
  Transmission Date: 20201102
  Serious: Yes (Other)
  Sender: FDA-Public Use
  Company Number: US-PFIZER INC-2019496058

PATIENT
  Age: 53 Year
  Sex: Female

DRUGS (1)
  1. ROBITUSSIN COUGH AND CHEST CONGESTION DM [Suspect]
     Active Substance: DEXTROMETHORPHAN HYDROBROMIDE\GUAIFENESIN
     Indication: HYPERSENSITIVITY
     Dosage: UNK

REACTIONS (5)
  - Somnolence [Unknown]
  - Blood pressure increased [Unknown]
  - Intentional product misuse [Unknown]
  - Movement disorder [Unknown]
  - Blood glucose increased [Unknown]
